FAERS Safety Report 6439910-2 (Version None)
Quarter: 2009Q4

REPORT INFORMATION
  Report Type: 
  Country: None (occurrence: None)
  Receive Date: 20091113
  Receipt Date: 20091105
  Transmission Date: 20100525
  Serious: Yes (Congenital Anomaly, Other)
  Sender: FDA-Public Use
  Company Number: US-WYE-H12078809

PATIENT
  Sex: Male

DRUGS (1)
  1. ADVIL [Suspect]
     Dosage: UNKNOWN
     Route: 064

REACTIONS (3)
  - ARRHYTHMIA [None]
  - DRUG EXPOSURE VIA BREAST MILK [None]
  - HEART DISEASE CONGENITAL [None]
